FAERS Safety Report 18691370 (Version 2)
Quarter: 2021Q4

REPORT INFORMATION
  Report Type: Report from Study
  Country: IT (occurrence: IT)
  Receive Date: 20210101
  Receipt Date: 20211117
  Transmission Date: 20220303
  Serious: Yes (Death, Life-Threatening, Hospitalization, Other)
  Sender: FDA-Public Use
  Company Number: IT-AMGEN-ITACT2020211632

PATIENT
  Age: 67 Year
  Sex: Female
  Weight: 52 kg

DRUGS (8)
  1. PANITUMUMAB [Suspect]
     Active Substance: PANITUMUMAB
     Indication: Colorectal cancer
     Dosage: 318 MILLIGRAM
     Route: 042
     Dates: start: 20191007
  2. PANITUMUMAB [Suspect]
     Active Substance: PANITUMUMAB
     Dosage: 249.60 MILLIGRAM
     Route: 042
     Dates: end: 20201218
  3. LEVOLEUCOVORIN CALCIUM [Suspect]
     Active Substance: LEVOLEUCOVORIN CALCIUM
     Indication: Colorectal cancer
     Dosage: 314 MILLIGRAM
     Route: 042
     Dates: start: 20191007
  4. LEVOLEUCOVORIN CALCIUM [Suspect]
     Active Substance: LEVOLEUCOVORIN CALCIUM
     Dosage: 310 MILLIGRAM
     Route: 042
     Dates: end: 20201218
  5. FLUOROURACIL [Suspect]
     Active Substance: FLUOROURACIL
     Indication: Colorectal cancer
     Dosage: 3768 MILLIGRAM
     Route: 042
     Dates: start: 20191007
  6. FLUOROURACIL [Suspect]
     Active Substance: FLUOROURACIL
     Dosage: 3720 MILLIGRAM
     Route: 042
     Dates: end: 20201218
  7. FLUOROURACIL [Suspect]
     Active Substance: FLUOROURACIL
     Dosage: 628 MILLIGRAM
     Route: 040
     Dates: start: 20191104
  8. FLUOROURACIL [Suspect]
     Active Substance: FLUOROURACIL
     Dosage: 620 MILLIGRAM
     Route: 040
     Dates: end: 20201218

REACTIONS (1)
  - Sepsis [Fatal]

NARRATIVE: CASE EVENT DATE: 20201218
